FAERS Safety Report 18623915 (Version 3)
Quarter: 2021Q1

REPORT INFORMATION
  Report Type: Spontaneous
  Country: FI (occurrence: FI)
  Receive Date: 20201216
  Receipt Date: 20210216
  Transmission Date: 20210419
  Serious: Yes (Other)
  Sender: FDA-Public Use
  Company Number: FI-JNJFOC-20201219393

PATIENT
  Age: 66 Year
  Sex: Female

DRUGS (4)
  1. KETIPINOR [Concomitant]
     Active Substance: QUETIAPINE FUMARATE
  2. DIAPAM [DIAZEPAM] [Concomitant]
  3. STELARA [Suspect]
     Active Substance: USTEKINUMAB
     Indication: PSORIASIS
     Route: 042
     Dates: start: 201605
  4. PROGYNOVA [ESTRADIOL] [Concomitant]

REACTIONS (3)
  - Off label use [Unknown]
  - Bone hypertrophy [Not Recovered/Not Resolved]
  - Product use issue [Unknown]

NARRATIVE: CASE EVENT DATE: 201605
